FAERS Safety Report 13331350 (Version 1)
Quarter: 2017Q1

REPORT INFORMATION
  Report Type: Spontaneous
  Country: US (occurrence: US)
  Receive Date: 20170313
  Receipt Date: 20170313
  Transmission Date: 20170428
  Serious: Yes (Life-Threatening, Hospitalization, Other)
  Sender: FDA-Public Use
  Company Number: None

PATIENT
  Age: 16 Year
  Sex: Female
  Weight: 45 kg

DRUGS (6)
  1. TRI-SPRINTEC [Suspect]
     Active Substance: ETHINYL ESTRADIOL\NORGESTIMATE
     Indication: MUSCLE SPASMS
     Route: 048
     Dates: start: 20160926, end: 20170309
  2. TRI-SPRINTEC [Suspect]
     Active Substance: ETHINYL ESTRADIOL\NORGESTIMATE
     Indication: CONTRACEPTION
     Route: 048
     Dates: start: 20160926, end: 20170309
  3. TYLENOL [Concomitant]
     Active Substance: ACETAMINOPHEN
  4. EXCEDRINE [Concomitant]
  5. TRI-SPRINTEC [Suspect]
     Active Substance: ETHINYL ESTRADIOL\NORGESTIMATE
     Indication: ACNE
     Route: 048
     Dates: start: 20160926, end: 20170309
  6. IBUPROFEN. [Concomitant]
     Active Substance: IBUPROFEN

REACTIONS (12)
  - Somnolence [None]
  - Migraine [None]
  - Pain [None]
  - Speech disorder [None]
  - Cerebrovascular accident [None]
  - Seizure [None]
  - Musculoskeletal stiffness [None]
  - Facial paralysis [None]
  - Vision blurred [None]
  - Stress [None]
  - Neck pain [None]
  - Eyelid ptosis [None]

NARRATIVE: CASE EVENT DATE: 20170309
